FAERS Safety Report 25024219 (Version 4)
Quarter: 2025Q4

REPORT INFORMATION
  Report Type: Report from Study
  Country: EU (occurrence: EU)
  Receive Date: 20250228
  Receipt Date: 20251016
  Transmission Date: 20260117
  Serious: Yes (Hospitalization, Disabling)
  Sender: ABBVIE
  Company Number: EU-JNJFOC-20250252944

PATIENT
  Age: 77 Year
  Sex: Male
  Weight: 70 kg

DRUGS (1)
  1. IBRUTINIB [Suspect]
     Active Substance: IBRUTINIB
     Indication: Mantle cell lymphoma
     Route: 048
     Dates: start: 20240516, end: 20250110

REACTIONS (3)
  - Vomiting [Recovered/Resolved]
  - COVID-19 pneumonia [Recovered/Resolved]
  - Respiratory failure [Recovered/Resolved with Sequelae]

NARRATIVE: CASE EVENT DATE: 20250302
